FAERS Safety Report 9016437 (Version 4)
Quarter: 2013Q3

REPORT INFORMATION
  Report Type: Report from Study
  Country: JP (occurrence: JP)
  Receive Date: 20130116
  Receipt Date: 20130903
  Transmission Date: 20140515
  Serious: Yes (Life-Threatening, Disabling)
  Sender: FDA-Public Use
  Company Number: JP-GLAXOSMITHKLINE-B0858145A

PATIENT
  Age: 16 Year
  Sex: Male
  Weight: 54 kg

DRUGS (20)
  1. ARRANON [Suspect]
     Indication: T-CELL TYPE ACUTE LEUKAEMIA
     Route: 042
     Dates: start: 20111024, end: 20111028
  2. ARRANON [Suspect]
     Indication: T-CELL TYPE ACUTE LEUKAEMIA
     Route: 042
     Dates: start: 20111128, end: 20111202
  3. ALKERAN [Suspect]
  4. LEUNASE [Suspect]
     Indication: NEOPLASM MALIGNANT
     Route: 042
     Dates: start: 20111105, end: 20111105
  5. LEUNASE [Suspect]
     Indication: NEOPLASM MALIGNANT
     Route: 042
     Dates: start: 20111111, end: 20111111
  6. CYTARABINE [Concomitant]
     Indication: NEOPLASM MALIGNANT
     Dates: start: 20111019, end: 20111019
  7. DECADRON [Concomitant]
     Indication: NEOPLASM MALIGNANT
     Dates: start: 20111031, end: 20111105
  8. CYLOCIDE [Concomitant]
     Indication: NEOPLASM MALIGNANT
     Dates: start: 20111031, end: 20111101
  9. CYLOCIDE [Concomitant]
     Indication: NEOPLASM MALIGNANT
     Dates: start: 20111104, end: 20111104
  10. ETOPOSIDE [Concomitant]
     Indication: NEOPLASM MALIGNANT
     Route: 042
     Dates: start: 20111102, end: 20111104
  11. ETOPOSIDE [Concomitant]
     Indication: NEOPLASM MALIGNANT
     Route: 042
     Dates: start: 20111209, end: 20111209
  12. ETOPOSIDE [Concomitant]
     Indication: NEOPLASM MALIGNANT
     Route: 042
     Dates: start: 20111213, end: 20111213
  13. ETOPOSIDE [Concomitant]
     Indication: NEOPLASM MALIGNANT
     Route: 042
     Dates: start: 20111216, end: 20111216
  14. METHOTREXATE [Concomitant]
     Indication: NEOPLASM MALIGNANT
     Dates: start: 20111104, end: 20111104
  15. SAXIZON [Concomitant]
     Indication: NEOPLASM MALIGNANT
     Dates: start: 20111104, end: 20111104
  16. DECADRON [Concomitant]
     Indication: NEOPLASM MALIGNANT
     Route: 048
     Dates: start: 20111209, end: 20111222
  17. MAXIPIME [Concomitant]
     Route: 042
     Dates: start: 20111018, end: 20111114
  18. GRANISETRON [Concomitant]
     Indication: PROPHYLAXIS
     Route: 042
     Dates: start: 20111024, end: 20111029
  19. GRANISETRON [Concomitant]
     Indication: PROPHYLAXIS
     Route: 042
     Dates: start: 20111128, end: 20111203
  20. RASURITEK [Concomitant]
     Indication: PROPHYLAXIS
     Route: 042
     Dates: start: 20111023, end: 20111031

REACTIONS (14)
  - Myelopathy [Recovered/Resolved with Sequelae]
  - Febrile neutropenia [Recovered/Resolved]
  - Hypogammaglobulinaemia [Recovered/Resolved]
  - Antithrombin III decreased [Recovered/Resolved]
  - Neutropenia [Recovered/Resolved]
  - Anaemia [Recovered/Resolved]
  - Platelet count decreased [Recovered/Resolved]
  - Histiocytosis haematophagic [Recovering/Resolving]
  - Disseminated intravascular coagulation [Recovering/Resolving]
  - Appendicitis perforated [Recovered/Resolved]
  - Muscular weakness [Not Recovered/Not Resolved]
  - Abasia [Not Recovered/Not Resolved]
  - Bladder disorder [Not Recovered/Not Resolved]
  - Anorectal disorder [Not Recovered/Not Resolved]
